FAERS Safety Report 7084868-9 (Version None)
Quarter: 2010Q4

REPORT INFORMATION
  Report Type: 
  Country: None (occurrence: None)
  Receive Date: 20101103
  Receipt Date: 20101103
  Transmission Date: 20110411
  Serious: No
  Sender: FDA-Public Use
  Company Number: None

PATIENT
  Age: 65 Year
  Sex: Female
  Weight: 71.2147 kg

DRUGS (2)
  1. AZITHROMYCIN [Suspect]
     Indication: INFLUENZA
     Dosage: 2 TABS ON FIRST DAY/ ONE TAB DAILY PO
     Route: 048
     Dates: start: 20101008, end: 20101012
  2. AZITHROMYCIN [Suspect]
     Indication: PYREXIA
     Dosage: 2 TABS ON FIRST DAY/ ONE TAB DAILY PO
     Route: 048
     Dates: start: 20101008, end: 20101012

REACTIONS (1)
  - TINNITUS [None]
